FAERS Safety Report 8130041-2 (Version None)
Quarter: 2012Q1

REPORT INFORMATION
  Report Type: 
  Country: None (occurrence: None)
  Receive Date: 20120210
  Receipt Date: 20120125
  Transmission Date: 20120608
  Serious: Yes (Hospitalization)
  Sender: FDA-Public Use
  Company Number: FR-PFIZER INC-2008031182

PATIENT
  Sex: Female
  Weight: 69 kg

DRUGS (2)
  1. TRIPHASIL-21 [Suspect]
     Dosage: I TABLET
     Route: 048
     Dates: start: 20010101, end: 20080207
  2. VARENICLINE TARTRATE [Suspect]
     Indication: SMOKING CESSATION THERAPY
     Dosage: 1 MG, 2X/DAY
     Route: 048
     Dates: start: 20080101, end: 20080207

REACTIONS (1)
  - THROMBOPHLEBITIS [None]
